FAERS Safety Report 24991816 (Version 1)
Quarter: 2025Q1

REPORT INFORMATION
  Report Type: Spontaneous
  Country: US (occurrence: US)
  Receive Date: 20250220
  Receipt Date: 20250220
  Transmission Date: 20250409
  Serious: Yes (Hospitalization, Other)
  Sender: DELCATH SYSTEMS
  Company Number: US-DELCATH SYSTEMS-DELC-000007

PATIENT
  Sex: Female

DRUGS (1)
  1. HEPZATO [Suspect]
     Active Substance: MELPHALAN
     Indication: Metastases to liver
     Route: 013
     Dates: start: 20240528

REACTIONS (1)
  - Anaphylactic reaction [Recovered/Resolved]

NARRATIVE: CASE EVENT DATE: 20240528
